FAERS Safety Report 9935254 (Version 1)
Quarter: 2014Q1

REPORT INFORMATION
  Report Type: Spontaneous
  Country: US (occurrence: US)
  Receive Date: 20140228
  Receipt Date: 20140228
  Transmission Date: 20141002
  Serious: No
  Sender: FDA-Public Use
  Company Number: US-009507513-1402USA010536

PATIENT
  Age: 22 Year
  Sex: 0

DRUGS (1)
  1. PROPECIA [Suspect]
     Route: 048

REACTIONS (2)
  - Adverse event [Unknown]
  - Hair disorder [Unknown]
